FAERS Safety Report 15394134 (Version 1)
Quarter: 2018Q3

REPORT INFORMATION
  Report Type: Report from Study
  Country: None (occurrence: US)
  Receive Date: 20180918
  Receipt Date: 20180918
  Transmission Date: 20181010
  Serious: Yes (Other)
  Sender: FDA-Public Use
  Company Number: US-ABBVIE-18K-163-2400829-00

PATIENT
  Age: 51 Year
  Sex: Male

DRUGS (4)
  1. HUMIRA [Suspect]
     Active Substance: ADALIMUMAB
     Indication: PSORIASIS
     Route: 058
  2. MIRTAZAPINE. [Suspect]
     Active Substance: MIRTAZAPINE
     Indication: DEPRESSION
     Route: 065
  3. LISINOPRIL. [Suspect]
     Active Substance: LISINOPRIL
     Indication: PRODUCT USED FOR UNKNOWN INDICATION
     Route: 065
  4. FLUOXETINE [Suspect]
     Active Substance: FLUOXETINE HYDROCHLORIDE
     Indication: PRODUCT USED FOR UNKNOWN INDICATION
     Route: 065

REACTIONS (17)
  - Back pain [Unknown]
  - Musculoskeletal pain [Unknown]
  - Retinal vascular occlusion [Unknown]
  - Visual impairment [Unknown]
  - Retinal haemorrhage [Unknown]
  - Spinal fusion acquired [Unknown]
  - Ankylosing spondylitis [Unknown]
  - Glaucoma [Unknown]
  - Fall [Unknown]
  - Diabetic neuropathy [Unknown]
  - Diabetic retinopathy [Unknown]
  - Cardiac operation [Unknown]
  - Depression [Not Recovered/Not Resolved]
  - Psoriasis [Not Recovered/Not Resolved]
  - Dizziness [Unknown]
  - Arthralgia [Unknown]
  - Tremor [Unknown]

NARRATIVE: CASE EVENT DATE: 2015
